FAERS Safety Report 5099812-3 (Version None)
Quarter: 2006Q3

REPORT INFORMATION
  Report Type: 
  Country: None (occurrence: None)
  Receive Date: 20060906
  Receipt Date: 20060824
  Transmission Date: 20061208
  Serious: Yes (Other)
  Sender: FDA-Public Use
  Company Number: 2006104658

PATIENT
  Age: 55 Year
  Sex: Female

DRUGS (1)
  1. LYRICA [Suspect]
     Indication: BACK PAIN
     Dosage: 10 MG  (75 MG, 2 IN 1 D), ORAL
     Route: 048
     Dates: start: 20060801

REACTIONS (5)
  - BLOOD GLUCOSE INCREASED [None]
  - FLATULENCE [None]
  - PARAESTHESIA [None]
  - SNEEZING [None]
  - WRONG TECHNIQUE IN DRUG USAGE PROCESS [None]
